FAERS Safety Report 13577411 (Version 1)
Quarter: 2017Q2

REPORT INFORMATION
  Report Type: Spontaneous
  Country: US (occurrence: US)
  Receive Date: 20170524
  Receipt Date: 20170524
  Transmission Date: 20170830
  Serious: Yes (Death)
  Sender: FDA-Public Use
  Company Number: US-JNJFOC-20170520806

PATIENT
  Age: 20 Year
  Sex: Female
  Weight: 54.2 kg

DRUGS (22)
  1. GEMTUZUMAB OZOGAMICIN [Suspect]
     Active Substance: GEMTUZUMAB OZOGAMICIN
     Indication: ACUTE MYELOID LEUKAEMIA RECURRENT
     Route: 042
     Dates: start: 20170228, end: 20170303
  2. DECITABINE. [Concomitant]
     Active Substance: DECITABINE
     Route: 065
     Dates: start: 20170223, end: 20170227
  3. SENNA [Concomitant]
     Active Substance: SENNA LEAF\SENNOSIDES\SENNOSIDES A AND B
     Route: 065
     Dates: start: 20170224, end: 20170324
  4. MORPHINE [Concomitant]
     Active Substance: MORPHINE
     Route: 065
     Dates: start: 20170224, end: 20170324
  5. ATIVAN [Concomitant]
     Active Substance: LORAZEPAM
     Route: 065
     Dates: start: 20170111, end: 20170315
  6. LEVAQUIN [Suspect]
     Active Substance: LEVOFLOXACIN
     Indication: BACTERAEMIA
     Route: 048
     Dates: start: 20170214, end: 20170315
  7. POSACONAZOLE [Concomitant]
     Active Substance: POSACONAZOLE
     Indication: FUNGAL INFECTION
     Route: 048
     Dates: start: 20170224, end: 20170315
  8. ACYCLOVIR. [Concomitant]
     Active Substance: ACYCLOVIR
     Route: 065
     Dates: start: 20161216, end: 20170324
  9. PEPCID [Concomitant]
     Active Substance: FAMOTIDINE
     Route: 065
     Dates: start: 20170303, end: 20170324
  10. CYCLOBENZAPRINE. [Concomitant]
     Active Substance: CYCLOBENZAPRINE
     Route: 065
     Dates: start: 20170111, end: 20170324
  11. MEROPENEM. [Suspect]
     Active Substance: MEROPENEM
     Indication: BACTERAEMIA
     Route: 042
     Dates: start: 20170316, end: 20170319
  12. CRYSELLE [Concomitant]
     Active Substance: ETHINYL ESTRADIOL\NORGESTREL
     Route: 065
     Dates: start: 20170112, end: 20170324
  13. DILAUDID [Concomitant]
     Active Substance: HYDROMORPHONE HYDROCHLORIDE
     Route: 065
     Dates: start: 20170227, end: 20170324
  14. MEROPENEM. [Suspect]
     Active Substance: MEROPENEM
     Indication: BACTERAEMIA
     Route: 042
     Dates: start: 20170210, end: 20170214
  15. PROCHLORPERAZINE. [Concomitant]
     Active Substance: PROCHLORPERAZINE
     Route: 065
     Dates: start: 20170224, end: 20170324
  16. PROTONIX [Concomitant]
     Active Substance: PANTOPRAZOLE SODIUM
     Route: 065
     Dates: start: 20170208, end: 20170324
  17. MIRALAX [Concomitant]
     Active Substance: POLYETHYLENE GLYCOL 3350
     Route: 065
     Dates: start: 20170224, end: 20170324
  18. ZOFRAN [Concomitant]
     Active Substance: ONDANSETRON HYDROCHLORIDE
     Route: 065
     Dates: start: 20161205, end: 20170324
  19. PENTAMIDINE [Concomitant]
     Active Substance: PENTAMIDINE
     Indication: BACTERIAL INFECTION
     Route: 055
     Dates: start: 20170202, end: 20170324
  20. LEVAQUIN [Suspect]
     Active Substance: LEVOFLOXACIN
     Indication: BACTERAEMIA
     Route: 048
     Dates: start: 20170321, end: 20170323
  21. LEXAPRO [Concomitant]
     Active Substance: ESCITALOPRAM OXALATE
     Route: 065
     Dates: start: 20161230, end: 20170324
  22. MORPHINE [Concomitant]
     Active Substance: MORPHINE
     Route: 065
     Dates: start: 20170313, end: 20170324

REACTIONS (3)
  - Enterococcal bacteraemia [Fatal]
  - Streptococcal bacteraemia [Fatal]
  - Clostridium difficile infection [Fatal]

NARRATIVE: CASE EVENT DATE: 20170315
